FAERS Safety Report 20245401 (Version 1)
Quarter: 2021Q4

REPORT INFORMATION
  Report Type: Spontaneous
  Country: CA (occurrence: CA)
  Receive Date: 20211229
  Receipt Date: 20211229
  Transmission Date: 20220303
  Serious: Yes (Other)
  Sender: FDA-Public Use
  Company Number: CA-PFIZER INC-202101843326

PATIENT
  Age: 86 Year
  Sex: Male

DRUGS (2)
  1. VYNDAQEL [Suspect]
     Active Substance: TAFAMIDIS MEGLUMINE
     Indication: Cardiomyopathy
     Dosage: 80 MG, 1X/DAY
     Route: 048
     Dates: start: 2021
  2. VYNDAQEL [Suspect]
     Active Substance: TAFAMIDIS MEGLUMINE
     Indication: Cardiac amyloidosis

REACTIONS (1)
  - Hepatic amyloidosis [Recovered/Resolved]

NARRATIVE: CASE EVENT DATE: 20210601
